FAERS Safety Report 7463968-5 (Version None)
Quarter: 2011Q2

REPORT INFORMATION
  Report Type: 
  Country: None (occurrence: None)
  Receive Date: 20110506
  Receipt Date: 20110426
  Transmission Date: 20111010
  Serious: Yes (Death, Other)
  Sender: FDA-Public Use
  Company Number: JP-BAYER-2011-035270

PATIENT
  Sex: Female

DRUGS (4)
  1. OXYGEN [Concomitant]
     Dosage: 2L/MIN
  2. CIPROFLOXACIN [Suspect]
     Indication: JAPANESE SPOTTED FEVER
     Route: 042
  3. FAMOTIDINE [Concomitant]
     Indication: PROPHYLAXIS AGAINST GASTROINTESTINAL ULCER
     Route: 065
  4. MINOCYCLINE HYDROCHLORIDE [Concomitant]
     Indication: JAPANESE SPOTTED FEVER
     Route: 042

REACTIONS (5)
  - ANAEMIA [None]
  - GASTRIC ULCER [None]
  - MELAENA [None]
  - ACUTE LUNG INJURY [None]
  - ACUTE RESPIRATORY DISTRESS SYNDROME [None]
